FAERS Safety Report 5011290-9 (Version None)
Quarter: 2006Q2

REPORT INFORMATION
  Report Type: 
  Country: None (occurrence: None)
  Receive Date: 20060523
  Receipt Date: 20060523
  Transmission Date: 20061013
  Serious: No
  Sender: FDA-Public Use
  Company Number: None

PATIENT
  Sex: Male
  Weight: 129.2752 kg

DRUGS (15)
  1. GATIFLOXACIN [Suspect]
     Indication: INFECTION
     Dosage: 400 MG Q DAY PO
     Route: 048
     Dates: start: 20041015, end: 20041029
  2. ACETAMINOPHEN [Concomitant]
  3. COMBIVEN [Concomitant]
  4. ALBUTEROL SULFATE AUTOHALER [Concomitant]
  5. ESASA [Concomitant]
  6. CLONIDINE TTS-3 [Concomitant]
  7. GUAIFENESEN DM [Concomitant]
  8. DOCUSATE [Concomitant]
  9. FLUNISOLIDE [Concomitant]
  10. FOSINOPRIL SODIUM [Concomitant]
  11. GLYBURIDE [Concomitant]
  12. LOVASTATIN [Concomitant]
  13. METFORMIN [Concomitant]
  14. SALSALATE [Concomitant]
  15. TRAVAPROST [Concomitant]

REACTIONS (1)
  - HYPOGLYCAEMIA [None]
